FAERS Safety Report 9147404 (Version 1)
Quarter: 2013Q1

REPORT INFORMATION
  Report Type: Spontaneous
  Country: US (occurrence: US)
  Receive Date: 20130307
  Receipt Date: 20130307
  Transmission Date: 20140127
  Serious: No
  Sender: FDA-Public Use
  Company Number: US-ASTRAZENECA-2013SE12631

PATIENT
  Age: 58 Year
  Sex: Female
  Weight: 65.8 kg

DRUGS (11)
  1. SEROQUEL [Suspect]
     Indication: BIPOLAR DISORDER
     Route: 048
     Dates: start: 201204
  2. SEROQUEL [Suspect]
     Indication: PSYCHOTIC DISORDER
     Route: 048
     Dates: start: 201204
  3. SEROQUEL [Suspect]
     Indication: BIPOLAR DISORDER
     Route: 048
     Dates: start: 201204
  4. SEROQUEL [Suspect]
     Indication: PSYCHOTIC DISORDER
     Route: 048
     Dates: start: 201204
  5. OLONZAPINE [Concomitant]
     Indication: BIPOLAR DISORDER
  6. OLONZAPINE [Concomitant]
     Indication: DEPRESSION
  7. OLONZAPINE [Concomitant]
     Indication: ANXIETY
  8. KLONOPIN [Concomitant]
     Indication: ANXIETY
  9. ZOLOFT [Concomitant]
     Indication: BIPOLAR DISORDER
  10. ZOLOFT [Concomitant]
     Indication: ANXIETY
  11. ZOCOR [Concomitant]
     Indication: BLOOD CHOLESTEROL ABNORMAL

REACTIONS (3)
  - Alopecia [Unknown]
  - Weight increased [Unknown]
  - Blood cholesterol increased [Unknown]
